FAERS Safety Report 20958037 (Version 1)
Quarter: 2022Q2

REPORT INFORMATION
  Report Type: Spontaneous
  Country: US (occurrence: None)
  Receive Date: 20220614
  Receipt Date: 20220614
  Transmission Date: 20220721
  Serious: Yes (Disabling)
  Sender: FDA-Public Use
  Company Number: None

PATIENT
  Age: 64 Year
  Sex: Female
  Weight: 60.75 kg

DRUGS (7)
  1. LORAZEPAM [Suspect]
     Active Substance: LORAZEPAM
     Indication: Dental care
     Route: 048
     Dates: start: 20210601, end: 20220613
  2. COENZYME Q10 [Concomitant]
     Active Substance: DIETARY SUPPLEMENT\UBIDECARENONE
  3. VITAMIN D3 [Concomitant]
     Active Substance: CHOLECALCIFEROL
  4. ZINC [Concomitant]
     Active Substance: ZINC
  5. FISH OIL [Concomitant]
     Active Substance: FISH OIL
  6. VITAMIN C [Concomitant]
     Active Substance: ASCORBIC ACID
  7. PROBIOTICS NOS [Concomitant]
     Active Substance: PROBIOTICS NOS

REACTIONS (3)
  - Memory impairment [None]
  - Insomnia [None]
  - Hallucinations, mixed [None]

NARRATIVE: CASE EVENT DATE: 20220613
